FAERS Safety Report 5884114-5 (Version None)
Quarter: 2008Q3

REPORT INFORMATION
  Report Type: 
  Country: None (occurrence: None)
  Receive Date: 20080915
  Receipt Date: 20080908
  Transmission Date: 20090109
  Serious: Yes (Death, Hospitalization)
  Sender: FDA-Public Use
  Company Number: PHHO2007GB10352

PATIENT
  Sex: Male
  Weight: 69.7 kg

DRUGS (5)
  1. TASIGNA [Suspect]
     Indication: CHRONIC MYELOID LEUKAEMIA
     Dosage: 400 MG, BID
     Route: 048
     Dates: start: 20070508
  2. TASIGNA [Suspect]
     Dosage: 600 MG, DAILY
     Route: 048
     Dates: start: 20070127
  3. DIAZEPAM [Concomitant]
  4. HYOSCINE [Concomitant]
  5. ONDANSETRON [Concomitant]

REACTIONS (19)
  - ANAEMIA [None]
  - BALANCE DISORDER [None]
  - CONCOMITANT DISEASE PROGRESSION [None]
  - COUGH [None]
  - DRUG RESISTANCE [None]
  - DYSPNOEA [None]
  - ESCHERICHIA INFECTION [None]
  - KLEBSIELLA INFECTION [None]
  - LOBAR PNEUMONIA [None]
  - LOWER RESPIRATORY TRACT INFECTION [None]
  - LUNG ABSCESS [None]
  - LYMPHOCYTE COUNT DECREASED [None]
  - MALAISE [None]
  - MONOCYTE COUNT DECREASED [None]
  - PANCYTOPENIA [None]
  - PLEURAL EFFUSION [None]
  - PULMONARY CAVITATION [None]
  - PYREXIA [None]
  - THROMBOCYTOPENIA [None]
